FAERS Safety Report 21183903 (Version 2)
Quarter: 2022Q4

REPORT INFORMATION
  Report Type: Report from Study
  Country: DO (occurrence: DO)
  Receive Date: 20220808
  Receipt Date: 20221004
  Transmission Date: 20230113
  Serious: Yes (Hospitalization, Other)
  Sender: FDA-Public Use
  Company Number: DO-ABBVIE-22K-279-4379870-00

PATIENT
  Sex: Female
  Weight: 58.967 kg

DRUGS (1)
  1. HUMIRA [Suspect]
     Active Substance: ADALIMUMAB
     Indication: Hidradenitis
     Route: 058
     Dates: start: 20190603, end: 20220920

REACTIONS (7)
  - Lymphadenopathy [Recovering/Resolving]
  - Inflammation [Recovering/Resolving]
  - Hidradenitis [Recovering/Resolving]
  - Bacterial infection [Recovering/Resolving]
  - Rash [Recovering/Resolving]
  - Underweight [Recovered/Resolved]
  - Inflammation [Recovered/Resolved]

NARRATIVE: CASE EVENT DATE: 20220101
